FAERS Safety Report 6082569-7 (Version None)
Quarter: 2009Q1

REPORT INFORMATION
  Report Type: 
  Country: None (occurrence: None)
  Receive Date: 20090218
  Receipt Date: 20090202
  Transmission Date: 20090719
  Serious: Yes (Other)
  Sender: FDA-Public Use
  Company Number: US-JNJFOC-20090200939

PATIENT

DRUGS (13)
  1. REMICADE [Suspect]
     Route: 064
  2. REMICADE [Suspect]
     Route: 064
  3. REMICADE [Suspect]
     Route: 064
  4. REMICADE [Suspect]
     Route: 064
  5. REMICADE [Suspect]
     Route: 064
  6. REMICADE [Suspect]
     Route: 064
  7. REMICADE [Suspect]
     Indication: DRUG EXPOSURE DURING PREGNANCY
     Route: 064
  8. ACETAMINOPHEN [Concomitant]
  9. ACETAMINOPHEN [Concomitant]
  10. ACETAMINOPHEN [Concomitant]
     Indication: DRUG EXPOSURE DURING PREGNANCY
  11. AZATHIOPRINE [Concomitant]
     Indication: DRUG EXPOSURE DURING PREGNANCY
  12. MESALAMINE [Concomitant]
     Indication: DRUG EXPOSURE DURING PREGNANCY
  13. PREDNISONE [Concomitant]
     Indication: DRUG EXPOSURE DURING PREGNANCY

REACTIONS (1)
  - PREMATURE BABY [None]
